FAERS Safety Report 17973752 (Version 2)
Quarter: 2020Q3

REPORT INFORMATION
  Report Type: Report from Study
  Country: HN (occurrence: HN)
  Receive Date: 20200702
  Receipt Date: 20200710
  Transmission Date: 20201103
  Serious: Yes (Death)
  Sender: FDA-Public Use
  Company Number: NVSC2020HN186515

PATIENT
  Age: 70 Year
  Sex: Female
  Weight: 45.3 kg

DRUGS (2)
  1. PULMICORT TURBUHALER [Concomitant]
     Active Substance: BUDESONIDE
     Indication: PRODUCT USED FOR UNKNOWN INDICATION
     Dosage: 250 MG, Q12H (1 SPOON EVERY 12HRS) (STOPPED 3 DAYS BEFORE DEATH)
     Route: 048
     Dates: start: 201906
  2. VYMADA [Suspect]
     Active Substance: SACUBITRIL\VALSARTAN
     Indication: CARDIAC FAILURE
     Dosage: 200 MG, Q12H (1/2 TABLET EVERY 12 HRS) (STOPPED 3 DAYS BEFORE DEATH)
     Route: 048
     Dates: start: 201911

REACTIONS (3)
  - Dyspnoea [Unknown]
  - Death [Fatal]
  - Wrong technique in product usage process [Unknown]

NARRATIVE: CASE EVENT DATE: 20200413
